FAERS Safety Report 7104915-5 (Version None)
Quarter: 2010Q4

REPORT INFORMATION
  Report Type: 
  Country: None (occurrence: None)
  Receive Date: 20101116
  Receipt Date: 20101108
  Transmission Date: 20110411
  Serious: Yes (Hospitalization)
  Sender: FDA-Public Use
  Company Number: US-KINGPHARMUSA00001-K201000497

PATIENT
  Sex: Male
  Weight: 90.703 kg

DRUGS (3)
  1. EMBEDA [Suspect]
     Indication: NECK PAIN
     Dosage: 30 MG, QD
     Route: 048
     Dates: start: 20100101, end: 20100501
  2. EMBEDA [Suspect]
     Indication: SPINAL FUSION SURGERY
  3. EMBEDA [Suspect]
     Indication: PAIN

REACTIONS (9)
  - ABDOMINAL DISCOMFORT [None]
  - ANXIETY [None]
  - CEREBROVASCULAR ACCIDENT [None]
  - CYANOSIS [None]
  - DRUG WITHDRAWAL SYNDROME [None]
  - FLUSHING [None]
  - HEADACHE [None]
  - INSOMNIA [None]
  - MIGRAINE [None]
